FAERS Safety Report 25310849 (Version 4)
Quarter: 2025Q3

REPORT INFORMATION
  Report Type: Report from Study
  Country: CA (occurrence: CA)
  Receive Date: 20250514
  Receipt Date: 20250717
  Transmission Date: 20251021
  Serious: Yes (Other)
  Sender: TAKEDA
  Company Number: CA-TAKEDA-2025TUS045175

PATIENT
  Sex: Female

DRUGS (9)
  1. VEDOLIZUMAB [Suspect]
     Active Substance: VEDOLIZUMAB
     Indication: Crohn^s disease
  2. VEDOLIZUMAB [Suspect]
     Active Substance: VEDOLIZUMAB
  3. VEDOLIZUMAB [Suspect]
     Active Substance: VEDOLIZUMAB
  4. PENTASA [Concomitant]
     Active Substance: MESALAMINE
  5. BUDESONIDE [Concomitant]
     Active Substance: BUDESONIDE
  6. Cortiment [Concomitant]
     Dosage: 9 MILLIGRAM, QD
  7. OMEGA 3 [Concomitant]
     Active Substance: CAPSAICIN
  8. IRON [Concomitant]
     Active Substance: IRON
  9. VITAMIN D [Concomitant]
     Active Substance: VITAMIN D NOS

REACTIONS (1)
  - Crohn^s disease [Not Recovered/Not Resolved]
